FAERS Safety Report 10766682 (Version 2)
Quarter: 2015Q1

REPORT INFORMATION
  Report Type: Report from Study
  Country: ES (occurrence: ES)
  Receive Date: 20150205
  Receipt Date: 20150213
  Transmission Date: 20150721
  Serious: Yes (Other)
  Sender: FDA-Public Use
  Company Number: PHHY2015ES011318

PATIENT
  Age: 28 Year
  Sex: Female

DRUGS (2)
  1. EXTAVIA [Suspect]
     Active Substance: INTERFERON BETA-1B
     Indication: MULTIPLE SCLEROSIS
     Dosage: 1 ML, UNK
     Route: 058
     Dates: start: 201409
  2. EUTIROX [Concomitant]
     Active Substance: LEVOTHYROXINE SODIUM
     Indication: HYPOTHYROIDISM
     Route: 065

REACTIONS (9)
  - Tremor [Recovering/Resolving]
  - Pain in extremity [Unknown]
  - Muscular weakness [Unknown]
  - Central nervous system lesion [Unknown]
  - Speech disorder [Recovering/Resolving]
  - Asthenia [Recovering/Resolving]
  - Dysphemia [Recovering/Resolving]
  - Balance disorder [Unknown]
  - Multiple sclerosis relapse [Not Recovered/Not Resolved]

NARRATIVE: CASE EVENT DATE: 201412
